FAERS Safety Report 7756218-3 (Version None)
Quarter: 2011Q3

REPORT INFORMATION
  Report Type: 
  Country: None (occurrence: None)
  Receive Date: 20110916
  Receipt Date: 20110914
  Transmission Date: 20111222
  Serious: Yes (Death, Hospitalization)
  Sender: FDA-Public Use
  Company Number: AU-B.I. PHARMACEUTICALS,INC./RIDGEFIELD-2011-AU-01080AU

PATIENT
  Sex: Male

DRUGS (11)
  1. PANAMAX [Concomitant]
     Dosage: 2 TABLETS 4 TIMES DAILY AS REQUIRED
  2. ZOCOR [Concomitant]
     Dosage: 40 MG
  3. PRADAXA [Suspect]
     Indication: CEREBROVASCULAR ACCIDENT PROPHYLAXIS
     Dosage: 220 MG
     Dates: start: 20110624, end: 20110810
  4. PRADAXA [Suspect]
     Indication: ATRIAL FIBRILLATION
  5. NITRAZEPAM [Concomitant]
     Dosage: 2.5-5 MG BEFORE BED AS REQUIRED
  6. CELESTONE M [Concomitant]
     Dosage: 0.02% THREE TIMES A DAY
  7. PRILOSEC [Concomitant]
     Dosage: 40 MG
  8. PERINDOPRIL ERBUMINE [Concomitant]
     Dosage: 10 MG
  9. IMDUR [Concomitant]
     Dosage: 30 MG
  10. BICOR [Concomitant]
     Dosage: 10 MG
  11. DIGOXIN [Concomitant]
     Dosage: 125 MCG

REACTIONS (2)
  - HEMIPARESIS [None]
  - CEREBRAL INFARCTION [None]
